FAERS Safety Report 25021981 (Version 2)
Quarter: 2025Q1

REPORT INFORMATION
  Report Type: Spontaneous
  Country: DE (occurrence: DE)
  Receive Date: 20250228
  Receipt Date: 20250306
  Transmission Date: 20250408
  Serious: Yes (Hospitalization)
  Sender: Kenvue
  Company Number: DE-SANDOZ-SDZ2025DE008925

PATIENT

DRUGS (4)
  1. IBUPROFEN [Suspect]
     Active Substance: IBUPROFEN
     Indication: Product used for unknown indication
     Route: 065
     Dates: start: 20190613, end: 20240704
  2. CELECOXIB [Suspect]
     Active Substance: CELECOXIB
     Indication: Product used for unknown indication
     Dosage: 200 MG, QD, 7 DAYS PER WEEK
     Route: 065
     Dates: start: 20240304, end: 20240318
  3. COSENTYX [Suspect]
     Active Substance: SECUKINUMAB
     Indication: Product used for unknown indication
     Route: 065
     Dates: start: 20180212
  4. ETORICOXIB [Concomitant]
     Active Substance: ETORICOXIB
     Indication: Product used for unknown indication
     Dosage: 180 MG, QD, 7 DAYS PER WEEK
     Route: 065
     Dates: start: 20240708

REACTIONS (1)
  - Bursitis [Recovered/Resolved]

NARRATIVE: CASE EVENT DATE: 20240304
